FAERS Safety Report 6014472-2 (Version None)
Quarter: 2008Q4

REPORT INFORMATION
  Report Type: 
  Country: None (occurrence: None)
  Receive Date: 20081219
  Receipt Date: 20080708
  Transmission Date: 20090506
  Serious: No
  Sender: FDA-Public Use
  Company Number: A0736493A

PATIENT
  Age: 78 Year
  Sex: Male

DRUGS (7)
  1. AVODART [Suspect]
     Indication: BENIGN PROSTATIC HYPERPLASIA
     Dosage: .5MG PER DAY
     Route: 048
     Dates: start: 20080609
  2. TOPROL-XL [Concomitant]
  3. XALATAN [Concomitant]
  4. MULTI-VITAMIN [Concomitant]
  5. VITAMIN B COMPLEX CAP [Concomitant]
  6. ASCORBIC ACID [Concomitant]
  7. MAGNESIUM SULFATE [Concomitant]

REACTIONS (2)
  - NOCTURIA [None]
  - URINE FLOW DECREASED [None]
